FAERS Safety Report 10341325 (Version 5)
Quarter: 2015Q1

REPORT INFORMATION
  Report Type: Report from Study
  Country: JP (occurrence: JP)
  Receive Date: 20140725
  Receipt Date: 20150331
  Transmission Date: 20150720
  Serious: Yes (Other)
  Sender: FDA-Public Use
  Company Number: JP-MERCK-1407JPN011025

PATIENT
  Age: 63 Year
  Sex: Female
  Weight: 53 kg

DRUGS (10)
  1. MAGLAX (MAGNESIUM OXIDE) [Concomitant]
     Active Substance: MAGNESIUM OXIDE
     Indication: DEVELOPMENTAL HIP DYSPLASIA
     Dosage: 500 MG, AS NECESSARY
     Route: 048
     Dates: start: 20140414
  2. PEGINTRON [Suspect]
     Active Substance: PEGINTERFERON ALFA-2B
     Dosage: 0.8 MICROGRAM PER KILOGRAM, 1 IN 1 WEEK
     Route: 058
     Dates: start: 20140424, end: 20140424
  3. PEGINTRON [Suspect]
     Active Substance: PEGINTERFERON ALFA-2B
     Indication: CHRONIC HEPATITIS C
     Dosage: 1.0 MICROGRAM PER KILOGRAM, 1 IN 1 WEEK
     Route: 058
     Dates: start: 20140410, end: 20140410
  4. RIBAVIRIN. [Suspect]
     Active Substance: RIBAVIRIN
     Indication: CHRONIC HEPATITIS C
     Dosage: 600 MG, 1 IN 1 DAY
     Route: 048
     Dates: start: 20140410, end: 20140813
  5. RIBAVIRIN. [Suspect]
     Active Substance: RIBAVIRIN
     Dosage: 200 MG, 1 IN 1 DAY
     Route: 048
     Dates: start: 20140814, end: 20140826
  6. PEGINTRON [Suspect]
     Active Substance: PEGINTERFERON ALFA-2B
     Dosage: 0.9 MICROGRAM PER KILOGRAM, 1 IN 1 WEEK
     Route: 058
     Dates: start: 20140501, end: 20140807
  7. PEGINTRON [Suspect]
     Active Substance: PEGINTERFERON ALFA-2B
     Dosage: 0.6 MICROGRAM PER KILOGRAM, 1 IN 1 WEEK
     Route: 058
     Dates: start: 20140417, end: 20140417
  8. METHYCOBAL [Concomitant]
     Active Substance: METHYLCOBALAMIN
     Indication: DEVELOPMENTAL HIP DYSPLASIA
     Dosage: 1 MG, 1 IN 1 DAY
     Route: 048
  9. PEGINTRON [Suspect]
     Active Substance: PEGINTERFERON ALFA-2B
     Dosage: 0.8 MICROGRAM PER KILOGRAM, 1 IN 1 WEEK
     Route: 058
     Dates: start: 20140814, end: 20140918
  10. SIMEPREVIR [Suspect]
     Active Substance: SIMEPREVIR
     Indication: CHRONIC HEPATITIS C
     Dosage: DAILY DOSE 100 MG, 1 IN 1 DAY
     Route: 048
     Dates: start: 20140410, end: 20140702

REACTIONS (7)
  - Hypokalaemia [Recovering/Resolving]
  - Pyrexia [Recovered/Resolved]
  - Rash [Recovering/Resolving]
  - Anisocytosis [Unknown]
  - Neutrophil count decreased [Recovered/Resolved]
  - Blood bilirubin increased [Recovered/Resolved]
  - Muscle spasms [Recovering/Resolving]

NARRATIVE: CASE EVENT DATE: 20140415
